FAERS Safety Report 7310227-7 (Version None)
Quarter: 2011Q1

REPORT INFORMATION
  Report Type: 
  Country: None (occurrence: None)
  Receive Date: 20110211
  Receipt Date: 20100812
  Transmission Date: 20110831
  Serious: Yes (Death)
  Sender: FDA-Public Use
  Company Number: UTC-004884

PATIENT
  Age: 38 Year
  Sex: Female

DRUGS (1)
  1. REMODULIN [Suspect]
     Dosage: 0.432 UG/KG (0.00003 UG/KG, 1 IN 1 MIN), SUBCUTANEOUS
     Route: 058

REACTIONS (1)
  - DEATH [None]
